FAERS Safety Report 24966508 (Version 2)
Quarter: 2025Q2

REPORT INFORMATION
  Report Type: Spontaneous
  Country: US (occurrence: US)
  Receive Date: 20250213
  Receipt Date: 20250407
  Transmission Date: 20250717
  Serious: Yes (Other)
  Sender: PFIZER
  Company Number: US-PFIZER INC-2020115116

PATIENT
  Age: 5 Year
  Sex: Male

DRUGS (1)
  1. BENEFIX [Suspect]
     Active Substance: COAGULATION FACTOR IX RECOMBINANT HUMAN\ISOPROPYL ALCOHOL
     Dosage: 1800 IU (+5%) = 100 IU/KG, DAILY ON DEMAND FOR BLEED

REACTIONS (1)
  - Haemarthrosis [Not Recovered/Not Resolved]
